FAERS Safety Report 15155624 (Version 1)
Quarter: 2018Q3

REPORT INFORMATION
  Report Type: Spontaneous
  Country: CN (occurrence: CN)
  Receive Date: 20180717
  Receipt Date: 20180717
  Transmission Date: 20181010
  Serious: Yes (Hospitalization, Other)
  Sender: FDA-Public Use
  Company Number: CN-ENDO PHARMACEUTICALS INC-2018-040039

PATIENT
  Age: 12 Year
  Sex: Male
  Weight: 41 kg

DRUGS (11)
  1. ATROPINE. [Concomitant]
     Active Substance: ATROPINE
     Dosage: 0.5 MG, TEN MINUTES AFTER THE FIRST DOSE
     Route: 042
  2. ROPIVACAINE [Concomitant]
     Active Substance: ROPIVACAINE
     Indication: NERVE BLOCK
     Dosage: 0.375 PERCENT, SINGLE
     Route: 065
  3. SEVOFLURANE. [Concomitant]
     Active Substance: SEVOFLURANE
     Indication: GENERAL ANAESTHESIA
     Dosage: 1 TO 1.5 PERCENT
     Route: 065
  4. NEOSTIGMINE METHYLSULFATE. [Suspect]
     Active Substance: NEOSTIGMINE METHYLSULFATE
     Dosage: 1 MG, TEN MINUTES AFTER THE FIRST DOSE
     Route: 042
  5. NEOSTIGMINE METHYLSULFATE. [Suspect]
     Active Substance: NEOSTIGMINE METHYLSULFATE
     Indication: NEUROMUSCULAR BLOCKADE REVERSAL
     Dosage: 1 MG, AT THE END OF SURGERY
     Route: 042
  6. ATROPINE. [Concomitant]
     Active Substance: ATROPINE
     Indication: NEUROMUSCULAR BLOCKADE REVERSAL
     Dosage: 0.5 MG, AT THE END OF SURGERY
     Route: 042
  7. FENTANYL. [Concomitant]
     Active Substance: FENTANYL
     Indication: GENERAL ANAESTHESIA
     Dosage: 4 ?G/KG, SINGLE
     Route: 042
  8. CISATRACURIUM. [Concomitant]
     Active Substance: CISATRACURIUM
     Indication: GENERAL ANAESTHESIA
     Dosage: 0.25 MG/KG, SINGLE
     Route: 042
  9. DIPRIVAN [Concomitant]
     Active Substance: PROPOFOL
     Indication: GENERAL ANAESTHESIA
     Dosage: 1.5 MG/KG, SINGLE
     Route: 042
  10. MIDAZOLAM [Concomitant]
     Active Substance: MIDAZOLAM HYDROCHLORIDE
     Indication: FEAR
  11. MIDAZOLAM [Concomitant]
     Active Substance: MIDAZOLAM HYDROCHLORIDE
     Indication: NERVOUSNESS
     Dosage: 7 MG, SINGLE
     Route: 042

REACTIONS (1)
  - Non-cardiogenic pulmonary oedema [Recovering/Resolving]
